FAERS Safety Report 11407253 (Version 1)
Quarter: 2015Q3

REPORT INFORMATION
  Report Type: Spontaneous
  Country: FR (occurrence: FR)
  Receive Date: 20150821
  Receipt Date: 20150821
  Transmission Date: 20151125
  Serious: Yes (Other)
  Sender: FDA-Public Use
  Company Number: FR-BAUSCH-BL-2015-019775

PATIENT
  Age: 79 Year
  Sex: Male

DRUGS (1)
  1. TIMOPTOL [Suspect]
     Active Substance: TIMOLOL
     Indication: OCULAR HYPERTENSION
     Route: 047
     Dates: start: 201304, end: 201507

REACTIONS (1)
  - Anosmia [Unknown]

NARRATIVE: CASE EVENT DATE: 201507
